FAERS Safety Report 4599686-0 (Version None)
Quarter: 2005Q1

REPORT INFORMATION
  Report Type: 
  Country: None (occurrence: None)
  Receive Date: 20050303
  Receipt Date: 20050215
  Transmission Date: 20050727
  Serious: Yes (Hospitalization, Other)
  Sender: FDA-Public Use
  Company Number: USA050290847

PATIENT
  Age: 57 Year
  Sex: Male
  Weight: 114 kg

DRUGS (7)
  1. CYMBALTA [Suspect]
     Indication: DEPRESSION
     Dosage: 30 MG DAY
     Dates: start: 20051201, end: 20050127
  2. LEXAPRO [Concomitant]
  3. TRILEPTAL [Concomitant]
  4. NORVASC [Concomitant]
  5. LOPRESSOR [Concomitant]
  6. ULTRAM [Concomitant]
  7. ZANAFLEX [Concomitant]

REACTIONS (10)
  - ABNORMAL BEHAVIOUR [None]
  - ANGER [None]
  - BIPOLAR II DISORDER [None]
  - CONDITION AGGRAVATED [None]
  - IMPULSIVE BEHAVIOUR [None]
  - IRRITABILITY [None]
  - MULTIPLE DRUG OVERDOSE [None]
  - PSYCHOTIC DISORDER [None]
  - REFUSAL OF TREATMENT BY PATIENT [None]
  - SUICIDE ATTEMPT [None]
